FAERS Safety Report 25373862 (Version 3)
Quarter: 2025Q2

REPORT INFORMATION
  Report Type: Spontaneous
  Country: US (occurrence: US)
  Receive Date: 20250529
  Receipt Date: 20250620
  Transmission Date: 20250717
  Serious: No
  Sender: PFIZER
  Company Number: US-PFIZER INC-202500078841

PATIENT
  Age: 53 Year
  Sex: Female

DRUGS (4)
  1. VELSIPITY [Suspect]
     Active Substance: ETRASIMOD ARGININE
     Indication: Crohn^s disease
     Dosage: 2 MG, 1X/DAY
     Route: 048
  2. VELSIPITY [Suspect]
     Active Substance: ETRASIMOD ARGININE
     Indication: Colitis
  3. SKYRIZI [Concomitant]
     Active Substance: RISANKIZUMAB-RZAA
     Dates: start: 20250425
  4. CEQUA [Concomitant]
     Active Substance: CYCLOSPORINE

REACTIONS (5)
  - Dizziness [Unknown]
  - Brain fog [Unknown]
  - Hyperhidrosis [Unknown]
  - Condition aggravated [Unknown]
  - Off label use [Unknown]
